FAERS Safety Report 15632137 (Version 6)
Quarter: 2019Q1

REPORT INFORMATION
  Report Type: Spontaneous
  Country: US (occurrence: US)
  Receive Date: 20181119
  Receipt Date: 20190318
  Transmission Date: 20190417
  Serious: No
  Sender: FDA-Public Use
  Company Number: US-BIOGEN-2018BI00645407

PATIENT
  Sex: Female
  Weight: 72.64 kg

DRUGS (6)
  1. TECFIDERA [Suspect]
     Active Substance: DIMETHYL FUMARATE
     Route: 048
     Dates: start: 201810
  2. GABAPENTIN. [Concomitant]
     Active Substance: GABAPENTIN
     Route: 050
  3. TECFIDERA [Suspect]
     Active Substance: DIMETHYL FUMARATE
     Route: 050
     Dates: start: 20181010
  4. TYLENOL [Concomitant]
     Active Substance: ACETAMINOPHEN
     Route: 050
  5. TECFIDERA [Suspect]
     Active Substance: DIMETHYL FUMARATE
     Indication: MULTIPLE SCLEROSIS
     Route: 050
     Dates: start: 20140829, end: 20141015
  6. TECFIDERA [Suspect]
     Active Substance: DIMETHYL FUMARATE
     Route: 050

REACTIONS (21)
  - Fall [Recovered/Resolved]
  - Gastrointestinal disorder [Not Recovered/Not Resolved]
  - Urinary tract infection [Recovered/Resolved]
  - Diarrhoea [Unknown]
  - Nausea [Not Recovered/Not Resolved]
  - Memory impairment [Not Recovered/Not Resolved]
  - Inflammation [Unknown]
  - Sleep disorder [Unknown]
  - Feeling abnormal [Not Recovered/Not Resolved]
  - Headache [Not Recovered/Not Resolved]
  - Hyperhidrosis [Unknown]
  - Bladder disorder [Not Recovered/Not Resolved]
  - Product dose omission [Unknown]
  - Abdominal pain upper [Recovered/Resolved]
  - Hemiparaesthesia [Not Recovered/Not Resolved]
  - Hot flush [Recovered/Resolved]
  - Balance disorder [Not Recovered/Not Resolved]
  - Presyncope [Not Recovered/Not Resolved]
  - Agitation [Unknown]
  - Urine output decreased [Unknown]
  - Flushing [Not Recovered/Not Resolved]
